FAERS Safety Report 6039130-X (Version None)
Quarter: 2009Q1

REPORT INFORMATION
  Report Type: 
  Country: None (occurrence: None)
  Receive Date: 20090115
  Receipt Date: 20090107
  Transmission Date: 20090719
  Serious: Yes (Death, Hospitalization)
  Sender: FDA-Public Use
  Company Number: US-GILEAD-2009-0019733

PATIENT
  Sex: Male

DRUGS (9)
  1. LETAIRIS [Suspect]
     Indication: PULMONARY ARTERIAL HYPERTENSION
     Route: 048
     Dates: start: 20080221, end: 20081213
  2. LETAIRIS [Suspect]
     Route: 048
     Dates: start: 20070829, end: 20080221
  3. FUROSEMIDE [Concomitant]
  4. DIGOXIN [Concomitant]
  5. PROCARDIA XL [Concomitant]
  6. COMBIVENT [Concomitant]
  7. ADVAIR DISKUS 100/50 [Concomitant]
  8. CLONAZEPAM [Concomitant]
  9. ASPIRIN [Concomitant]

REACTIONS (1)
  - PNEUMONIA [None]
